FAERS Safety Report 18953862 (Version 1)
Quarter: 2021Q1

REPORT INFORMATION
  Report Type: Spontaneous
  Country: ES (occurrence: ES)
  Receive Date: 20210301
  Receipt Date: 20210301
  Transmission Date: 20210420
  Serious: Yes (Death, Other)
  Sender: FDA-Public Use
  Company Number: ES-TEVA-2021-ES-1884379

PATIENT
  Age: 77 Year
  Sex: Male

DRUGS (3)
  1. OMEPRAZOL (2141A) [Suspect]
     Active Substance: OMEPRAZOLE
     Indication: PROPHYLAXIS AGAINST GASTROINTESTINAL ULCER
     Dosage: 20MG
     Route: 048
     Dates: start: 20201231, end: 20210118
  2. ACETAZOLAMIDA (226A) [Concomitant]
     Active Substance: ACETAZOLAMIDE
     Indication: CARDIAC FAILURE
     Route: 048
     Dates: start: 20210106, end: 20210119
  3. AMOXICILINA + ACIDO CLAVULANICO [Concomitant]
     Active Substance: AMOXICILLIN\CLAVULANIC ACID
     Indication: ANTIBIOTIC PROPHYLAXIS
     Route: 042
     Dates: start: 20210112, end: 20210113

REACTIONS (2)
  - Eosinophilia [Recovered/Resolved]
  - Rash maculo-papular [Recovered/Resolved]

NARRATIVE: CASE EVENT DATE: 20210113
